FAERS Safety Report 17343348 (Version 2)
Quarter: 2021Q4

REPORT INFORMATION
  Report Type: Other
  Country: None (occurrence: AU)
  Receive Date: 20200129
  Receipt Date: 20211104
  Transmission Date: 20220304
  Serious: Yes (Hospitalization)
  Sender: FDA-Public Use
  Company Number: AU-ALSI-202000031

PATIENT
  Age: 24 Year
  Sex: Female

DRUGS (1)
  1. NITROUS OXIDE [Suspect]
     Active Substance: NITROUS OXIDE
     Indication: Substance abuse
     Route: 055

REACTIONS (1)
  - Subacute combined cord degeneration [Recovered/Resolved with Sequelae]
